FAERS Safety Report 5641818-7 (Version None)
Quarter: 2008Q1

REPORT INFORMATION
  Report Type: 
  Country: None (occurrence: None)
  Receive Date: 20080227
  Receipt Date: 20080213
  Transmission Date: 20080703
  Serious: Yes (Hospitalization)
  Sender: FDA-Public Use
  Company Number: PL-AMGEN-UK260425

PATIENT
  Sex: Male

DRUGS (5)
  1. PANITUMUMAB [Suspect]
     Indication: COLORECTAL CANCER
     Route: 041
     Dates: start: 20071004
  2. KETOPROFEN [Suspect]
     Route: 065
  3. FOLINIC ACID [Concomitant]
     Route: 065
  4. OXALIPLATIN [Concomitant]
     Route: 065
  5. FLUOROURACIL [Concomitant]
     Route: 065

REACTIONS (1)
  - HAEMOPTYSIS [None]
